FAERS Safety Report 7651825-0 (Version None)
Quarter: 2011Q3

REPORT INFORMATION
  Report Type: 
  Country: None (occurrence: None)
  Receive Date: 20110803
  Receipt Date: 20110725
  Transmission Date: 20111222
  Serious: Yes (Hospitalization)
  Sender: FDA-Public Use
  Company Number: US-BIOGENIDEC-2010BI033662

PATIENT
  Sex: Female

DRUGS (1)
  1. TYSABRI [Suspect]
     Indication: MULTIPLE SCLEROSIS
     Route: 042
     Dates: start: 20080714

REACTIONS (15)
  - SPONDYLOLISTHESIS [None]
  - BACK PAIN [None]
  - VOMITING [None]
  - BLOOD GLUCOSE INCREASED [None]
  - OSTEOMALACIA [None]
  - BLOOD PRESSURE DECREASED [None]
  - FALL [None]
  - NEURALGIA [None]
  - VISION BLURRED [None]
  - BONE CYST [None]
  - COGNITIVE DISORDER [None]
  - NAUSEA [None]
  - BACK INJURY [None]
  - NEUROPATHY PERIPHERAL [None]
  - MUSCULOSKELETAL DISORDER [None]
